FAERS Safety Report 12694924 (Version 3)
Quarter: 2016Q3

REPORT INFORMATION
  Report Type: Report from Study
  Country: US (occurrence: US)
  Receive Date: 20160829
  Receipt Date: 20160927
  Transmission Date: 20161109
  Serious: Yes (Other)
  Sender: FDA-Public Use
  Company Number: US-AMGEN-USASL2016111559

PATIENT
  Age: 74 Year
  Sex: Female
  Weight: 64.41 kg

DRUGS (15)
  1. IPRATROPIUM BROMIDE. [Concomitant]
     Active Substance: IPRATROPIUM BROMIDE
     Dosage: 0.03 %, 2 SPRAYS EACH NOSTRIL
  2. CALCIUM [Concomitant]
     Active Substance: CALCIUM
     Dosage: 1200 MG, QD
  3. VITAMIN C [Concomitant]
     Active Substance: ASCORBIC ACID
     Dosage: 3000 IU, QD
  4. ENBREL [Suspect]
     Active Substance: ETANERCEPT
     Indication: PSORIATIC ARTHROPATHY
     Dosage: 50 MG, QWK
     Route: 058
  5. METHOTREXATE SODIUM. [Concomitant]
     Active Substance: METHOTREXATE SODIUM
     Dosage: 5 MG, QWK
     Route: 048
  6. ESTROGEL [Concomitant]
     Active Substance: ESTRADIOL
     Dosage: 1.25 G, QD
  7. VENTOLIN HFA [Concomitant]
     Active Substance: ALBUTEROL SULFATE
     Dosage: 90 MUG, UNK
  8. FOLIC ACID. [Concomitant]
     Active Substance: FOLIC ACID
     Dosage: 1 DF, QD
  9. VITAMIN D3 [Concomitant]
     Active Substance: CHOLECALCIFEROL
     Dosage: 6000 IU, QD
  10. ALBUTEROL SULFATE. [Concomitant]
     Active Substance: ALBUTEROL SULFATE
     Dosage: 2.5 MG, UNK
  11. METHOTREXATE SODIUM. [Concomitant]
     Active Substance: METHOTREXATE SODIUM
     Dosage: 2.5 MG, QWK
  12. VANIQA [Concomitant]
     Active Substance: EFLORNITHINE HYDROCHLORIDE
     Dosage: 13.9 %, BID
  13. ALVESCO [Concomitant]
     Active Substance: CICLESONIDE
     Dosage: 80 MUG, UNK
  14. FEXOFENADINE HCL [Concomitant]
     Active Substance: FEXOFENADINE HYDROCHLORIDE
     Dosage: 180 MG, UNK
  15. ENBREL [Suspect]
     Active Substance: ETANERCEPT
     Dosage: 50 MG, 2 TIMES/WK
     Route: 065
     Dates: start: 201311

REACTIONS (33)
  - Hyperlipidaemia [Unknown]
  - Drug effect incomplete [Unknown]
  - C-reactive protein abnormal [Unknown]
  - Cataract [Unknown]
  - Joint stiffness [Not Recovered/Not Resolved]
  - Visual impairment [Unknown]
  - Arthralgia [Unknown]
  - Pain in extremity [Unknown]
  - Synovitis [Unknown]
  - Muscle atrophy [Unknown]
  - Otitis media [Unknown]
  - Musculoskeletal stiffness [Unknown]
  - Intervertebral disc displacement [Unknown]
  - Tenosynovitis [Unknown]
  - Immunosuppression [Unknown]
  - Off label use [Unknown]
  - Alopecia [Unknown]
  - Hypoacusis [Unknown]
  - Leukocytosis [Unknown]
  - Osteoporosis [Unknown]
  - Nodule [Unknown]
  - Coagulopathy [Unknown]
  - Fibromyalgia [Unknown]
  - Asthma [Unknown]
  - Cholecystitis [Unknown]
  - Keratitis [Unknown]
  - Myalgia [Unknown]
  - Peripheral swelling [Unknown]
  - Fatigue [Unknown]
  - Phobia [Unknown]
  - Weight decreased [Unknown]
  - Joint range of motion decreased [Unknown]
  - Hypotension [Unknown]

NARRATIVE: CASE EVENT DATE: 201311
